FAERS Safety Report 5939320-8 (Version None)
Quarter: 2008Q4

REPORT INFORMATION
  Report Type: 
  Country: None (occurrence: None)
  Receive Date: 20081103
  Receipt Date: 20081022
  Transmission Date: 20090506
  Serious: Yes (Other)
  Sender: FDA-Public Use
  Company Number: US-PFIZER INC-2008089757

PATIENT
  Sex: Male
  Weight: 91.2 kg

DRUGS (7)
  1. LYRICA [Suspect]
     Indication: PAIN IN EXTREMITY
     Dates: start: 20081017, end: 20081019
  2. LYRICA [Suspect]
     Indication: BACK PAIN
  3. ALL OTHER THERAPEUTIC PRODUCTS [Concomitant]
  4. COREG [Concomitant]
  5. BUMEX [Concomitant]
  6. WARFARIN SODIUM [Concomitant]
  7. ACETYLSALICYLIC ACID SRT [Concomitant]

REACTIONS (5)
  - COUGH [None]
  - DRY MOUTH [None]
  - HEART RATE INCREASED [None]
  - MALAISE [None]
  - WHEEZING [None]
